FAERS Safety Report 9880592 (Version 2)
Quarter: 2014Q1

REPORT INFORMATION
  Report Type: Spontaneous
  Country: US (occurrence: US)
  Receive Date: 20140207
  Receipt Date: 20140223
  Transmission Date: 20141002
  Serious: Yes (Death, Hospitalization)
  Sender: FDA-Public Use
  Company Number: US-ROCHE-1345246

PATIENT
  Age: 74 Year
  Sex: Female
  Weight: 65.83 kg

DRUGS (2)
  1. XELODA [Suspect]
     Indication: BREAST CANCER
     Dosage: 3 TABS BID  FOR 14 DAYS
     Route: 048
     Dates: start: 20131003
  2. XELODA [Suspect]
     Route: 048
     Dates: start: 20131011

REACTIONS (2)
  - Death [Fatal]
  - Hip fracture [Unknown]
